FAERS Safety Report 9733057 (Version 1)
Quarter: 2013Q4

REPORT INFORMATION
  Report Type: Spontaneous
  Country: US (occurrence: US)
  Receive Date: 20131204
  Receipt Date: 20131204
  Transmission Date: 20140711
  Serious: No
  Sender: FDA-Public Use
  Company Number: US-TEVA-447586USA

PATIENT
  Sex: Male

DRUGS (1)
  1. FENTORA [Suspect]
     Indication: PAIN
     Route: 002

REACTIONS (1)
  - Drug ineffective [Unknown]
